FAERS Safety Report 15942579 (Version 3)
Quarter: 2021Q4

REPORT INFORMATION
  Report Type: Spontaneous
  Country: US (occurrence: None)
  Receive Date: 20190209
  Receipt Date: 20211119
  Transmission Date: 20220303
  Serious: Yes (Other)
  Sender: FDA-Public Use
  Company Number: 2019SE09301

PATIENT
  Age: 658 Month
  Sex: Female
  Weight: 89.4 kg

DRUGS (27)
  1. NEXIUM 24HR [Suspect]
     Active Substance: ESOMEPRAZOLE MAGNESIUM
     Indication: Gastrooesophageal reflux disease
     Route: 048
  2. NEXIUM [Suspect]
     Active Substance: ESOMEPRAZOLE MAGNESIUM
     Indication: Ulcer
     Route: 048
  3. PRILOSEC [Suspect]
     Active Substance: OMEPRAZOLE MAGNESIUM
     Indication: Gastrooesophageal reflux disease
     Route: 048
  4. PRILOSEC [Suspect]
     Active Substance: OMEPRAZOLE MAGNESIUM
     Indication: Gastrooesophageal reflux disease
     Route: 048
     Dates: start: 1992
  5. PRILOSEC OTC [Suspect]
     Active Substance: OMEPRAZOLE MAGNESIUM
     Indication: Gastrooesophageal reflux disease
     Route: 048
  6. PREVACID [Suspect]
     Active Substance: LANSOPRAZOLE
     Route: 065
  7. RANITIDINE [Concomitant]
     Active Substance: RANITIDINE
  8. VENLAFAXINE [Concomitant]
     Active Substance: VENLAFAXINE HYDROCHLORIDE
  9. BUPROPION [Concomitant]
     Active Substance: BUPROPION
     Indication: Depression
     Route: 065
  10. TOPIRAMATE [Concomitant]
     Active Substance: TOPIRAMATE
     Route: 065
  11. CLONAZEPAM [Concomitant]
     Active Substance: CLONAZEPAM
     Route: 065
  12. PEPCID [Concomitant]
     Active Substance: FAMOTIDINE
  13. MUPIROCIN [Concomitant]
     Active Substance: MUPIROCIN
  14. DULOXETINE [Concomitant]
     Active Substance: DULOXETINE
  15. CETIRIZINE [Concomitant]
     Active Substance: CETIRIZINE HYDROCHLORIDE
  16. FLAXSEED [Concomitant]
     Active Substance: FLAX SEED
  17. NAPROXEN SODIUM [Concomitant]
     Active Substance: NAPROXEN SODIUM
  18. ESTRACE [Concomitant]
     Active Substance: ESTRADIOL
  19. ACETAMINOPHEN\HYDROCODONE BITARTRATE [Concomitant]
     Active Substance: ACETAMINOPHEN\HYDROCODONE BITARTRATE
  20. AMBROXOL/SULFAMETHOXAZOLE/TRIMETHOPRIM [Concomitant]
  21. GLUCOSAM-CHOND [Concomitant]
  22. CLINDAMYCIN [Concomitant]
     Active Substance: CLINDAMYCIN
  23. VITAMIN D3 [Concomitant]
     Active Substance: CHOLECALCIFEROL
  24. IRON [Concomitant]
     Active Substance: IRON
  25. LORATADINE [Concomitant]
     Active Substance: LORATADINE
  26. CYCLOBENZAPRINE [Concomitant]
     Active Substance: CYCLOBENZAPRINE
  27. CEFTRIAXONE [Concomitant]
     Active Substance: CEFTRIAXONE

REACTIONS (5)
  - Acute kidney injury [Unknown]
  - Chronic kidney disease [Not Recovered/Not Resolved]
  - Renal failure [Unknown]
  - Renal injury [Unknown]
  - Rebound acid hypersecretion [Unknown]

NARRATIVE: CASE EVENT DATE: 20150901
